FAERS Safety Report 9720648 (Version 1)
Quarter: 2013Q4

REPORT INFORMATION
  Report Type: Spontaneous
  Country: US (occurrence: US)
  Receive Date: 20131129
  Receipt Date: 20131129
  Transmission Date: 20140711
  Serious: Yes (Death)
  Sender: FDA-Public Use
  Company Number: US-SA-2013SA123296

PATIENT
  Age: 10 Year
  Sex: Female
  Weight: 12 kg

DRUGS (1)
  1. CEREZYME [Suspect]
     Indication: GAUCHER^S DISEASE
     Dosage: DOSE:5 UNIT(S)/KILOGRAM BODYWEIGHT
     Route: 042
     Dates: start: 20040620, end: 201112

REACTIONS (1)
  - Death [Fatal]
